FAERS Safety Report 25267324 (Version 2)
Quarter: 2025Q2

REPORT INFORMATION
  Report Type: Report from Study
  Country: US (occurrence: US)
  Receive Date: 20250505
  Receipt Date: 20250509
  Transmission Date: 20250716
  Serious: Yes (Hospitalization, Other)
  Sender: BRISTOL-MYERS SQUIBB COMPANY
  Company Number: US-BRISTOL-MYERS SQUIBB COMPANY-2025-064426

PATIENT
  Age: 84 Year
  Sex: Female
  Weight: 81.65 kg

DRUGS (3)
  1. ELIQUIS [Suspect]
     Active Substance: APIXABAN
     Indication: Atrial fibrillation
     Route: 048
  2. ELIQUIS [Suspect]
     Active Substance: APIXABAN
     Route: 048
  3. ASPIRIN [Concomitant]
     Active Substance: ASPIRIN
     Indication: Seizure

REACTIONS (9)
  - Dizziness [Unknown]
  - Cataract [Unknown]
  - Increased appetite [Unknown]
  - Weight increased [Unknown]
  - Fluid retention [Unknown]
  - Malaise [Unknown]
  - Chest discomfort [Unknown]
  - Tooth disorder [Unknown]
  - Contusion [Unknown]

NARRATIVE: CASE EVENT DATE: 20250101
